FAERS Safety Report 4817873-0 (Version None)
Quarter: 2005Q3

REPORT INFORMATION
  Report Type: 
  Country: None (occurrence: None)
  Receive Date: 20050929
  Receipt Date: 20050628
  Transmission Date: 20060218
  Serious: No
  Sender: FDA-Public Use
  Company Number: 05P-163-0304269-00

PATIENT
  Age: 66 Year
  Sex: Female
  Weight: 79.3795 kg

DRUGS (11)
  1. HUMIRA [Suspect]
     Indication: RHEUMATOID ARTHRITIS
     Dosage: 40 MG, 1 IN 2 WK, SUBCUTANEOUS
     Route: 058
     Dates: start: 20050214
  2. PREDNISONE [Concomitant]
  3. PANTOPRAZOLE [Concomitant]
  4. ATENOLOL [Concomitant]
  5. DETROL LA [Concomitant]
  6. AMLODIPINE BESYLATE [Concomitant]
  7. CRESTOR [Concomitant]
  8. FLUCONAZOLE [Concomitant]
  9. GLYCOLAX [Concomitant]
  10. GLUCOSAMINE/CHONDROITON [Concomitant]
  11. ASPIRIN [Concomitant]

REACTIONS (3)
  - ARTHRALGIA [None]
  - GROIN PAIN [None]
  - JOINT SWELLING [None]
